FAERS Safety Report 9437915 (Version 1)
Quarter: 2013Q3

REPORT INFORMATION
  Report Type: Spontaneous
  Country: US (occurrence: US)
  Receive Date: 20130802
  Receipt Date: 20130802
  Transmission Date: 20140515
  Serious: No
  Sender: FDA-Public Use
  Company Number: US-BRISTOL-MYERS SQUIBB COMPANY-18754283

PATIENT
  Age: 73 Year
  Sex: Male
  Weight: 104.31 kg

DRUGS (7)
  1. COUMADIN [Suspect]
  2. WARFARIN SODIUM [Suspect]
  3. BENICAR [Concomitant]
  4. METOPROLOL [Concomitant]
  5. LIPITOR [Concomitant]
  6. ZETIA [Concomitant]
  7. VITAMINS [Concomitant]

REACTIONS (1)
  - Dyspepsia [Unknown]
